FAERS Safety Report 18245181 (Version 2)
Quarter: 2020Q4

REPORT INFORMATION
  Report Type: Other
  Country: US (occurrence: US)
  Receive Date: 20200909
  Receipt Date: 20201204
  Transmission Date: 20210113
  Serious: Yes (Hospitalization)
  Sender: FDA-Public Use
  Company Number: US-ROCHE-2670477

PATIENT
  Age: 47 Year
  Sex: Female

DRUGS (1)
  1. OCREVUS [Suspect]
     Active Substance: OCRELIZUMAB
     Indication: RELAPSING MULTIPLE SCLEROSIS
     Dosage: MOST RECENT DOSES GIVEN ON 05/JAN/2018, 18/JAN/2018, 05/JUL/2018, 19/JAN/2019, 01/AUG/2019 AND 06/FE
     Route: 065
     Dates: start: 20180105, end: 20200206

REACTIONS (3)
  - Dehydration [Unknown]
  - Urinary tract infection [Unknown]
  - Sepsis [Unknown]

NARRATIVE: CASE EVENT DATE: 202008
